FAERS Safety Report 19704217 (Version 2)
Quarter: 2025Q2

REPORT INFORMATION
  Report Type: Spontaneous
  Country: FR (occurrence: FR)
  Receive Date: 20210816
  Receipt Date: 20250523
  Transmission Date: 20250717
  Serious: Yes (Death, Hospitalization)
  Sender: STRIDES
  Company Number: FR-STRIDES ARCOLAB LIMITED-2021SP026398

PATIENT
  Age: 75 Year
  Sex: Male

DRUGS (40)
  1. ERYTHROMYCIN [Suspect]
     Active Substance: ERYTHROMYCIN
     Indication: Bacteraemia
     Route: 065
     Dates: start: 201802, end: 201802
  2. ERYTHROMYCIN [Suspect]
     Active Substance: ERYTHROMYCIN
     Indication: Peritonitis
     Route: 065
     Dates: start: 201805, end: 201805
  3. ERYTHROMYCIN [Suspect]
     Active Substance: ERYTHROMYCIN
     Indication: Pneumonia
  4. VANCOMYCIN [Suspect]
     Active Substance: VANCOMYCIN
     Indication: Bacteraemia
     Route: 065
     Dates: start: 201802, end: 201802
  5. VANCOMYCIN [Suspect]
     Active Substance: VANCOMYCIN
     Route: 065
     Dates: start: 201803, end: 201803
  6. PIPERACILLIN SODIUM\TAZOBACTAM SODIUM [Suspect]
     Active Substance: PIPERACILLIN SODIUM\TAZOBACTAM SODIUM
     Indication: Bacteraemia
     Route: 065
     Dates: start: 201802, end: 201802
  7. IMIPENEM [Suspect]
     Active Substance: IMIPENEM
     Indication: Bacteraemia
     Route: 065
     Dates: start: 201802, end: 201802
  8. MEROPENEM [Suspect]
     Active Substance: MEROPENEM
     Indication: Bacteraemia
     Route: 065
     Dates: start: 201803, end: 2018
  9. MEROPENEM [Suspect]
     Active Substance: MEROPENEM
     Indication: Pneumonia
     Route: 065
     Dates: start: 201803, end: 201804
  10. MEROPENEM [Suspect]
     Active Substance: MEROPENEM
     Indication: Peritonitis
     Route: 065
     Dates: start: 201804, end: 201805
  11. MEROPENEM [Suspect]
     Active Substance: MEROPENEM
     Indication: Enterobacter infection
  12. MEROPENEM [Suspect]
     Active Substance: MEROPENEM
     Indication: Staphylococcal infection
  13. AVIBACTAM SODIUM\CEFTAZIDIME [Suspect]
     Active Substance: AVIBACTAM SODIUM\CEFTAZIDIME
     Indication: Bacteraemia
     Route: 065
     Dates: start: 201805, end: 201805
  14. AVIBACTAM SODIUM\CEFTAZIDIME [Suspect]
     Active Substance: AVIBACTAM SODIUM\CEFTAZIDIME
     Indication: Pneumonia
  15. AVIBACTAM SODIUM\CEFTAZIDIME [Suspect]
     Active Substance: AVIBACTAM SODIUM\CEFTAZIDIME
     Indication: Peritonitis
  16. AVIBACTAM SODIUM\CEFTAZIDIME [Suspect]
     Active Substance: AVIBACTAM SODIUM\CEFTAZIDIME
     Indication: Enterobacter infection
  17. AVIBACTAM SODIUM\CEFTAZIDIME [Suspect]
     Active Substance: AVIBACTAM SODIUM\CEFTAZIDIME
     Indication: Staphylococcal infection
  18. AMIKACIN [Suspect]
     Active Substance: AMIKACIN
     Indication: Bacteraemia
     Route: 065
     Dates: start: 201802, end: 201802
  19. AMIKACIN [Suspect]
     Active Substance: AMIKACIN
     Indication: Pneumonia
     Route: 065
     Dates: start: 201803, end: 201803
  20. AMIKACIN [Suspect]
     Active Substance: AMIKACIN
     Indication: Peritonitis
     Route: 065
     Dates: start: 201804, end: 201804
  21. AMIKACIN [Suspect]
     Active Substance: AMIKACIN
     Indication: Enterobacter infection
  22. AMIKACIN [Suspect]
     Active Substance: AMIKACIN
     Indication: Staphylococcal infection
  23. COTRIMOXAZOLE [Suspect]
     Active Substance: SULFAMETHOXAZOLE\TRIMETHOPRIM
     Indication: Bacteraemia
     Route: 065
     Dates: start: 201803, end: 201804
  24. COTRIMOXAZOLE [Suspect]
     Active Substance: SULFAMETHOXAZOLE\TRIMETHOPRIM
     Indication: Pneumonia
  25. COTRIMOXAZOLE [Suspect]
     Active Substance: SULFAMETHOXAZOLE\TRIMETHOPRIM
     Indication: Peritonitis
  26. COTRIMOXAZOLE [Suspect]
     Active Substance: SULFAMETHOXAZOLE\TRIMETHOPRIM
     Indication: Enterobacter infection
  27. COTRIMOXAZOLE [Suspect]
     Active Substance: SULFAMETHOXAZOLE\TRIMETHOPRIM
     Indication: Staphylococcal infection
  28. LINEZOLID [Suspect]
     Active Substance: LINEZOLID
     Indication: Bacteraemia
     Route: 065
     Dates: start: 201802, end: 201802
  29. LINEZOLID [Suspect]
     Active Substance: LINEZOLID
     Indication: Pneumonia
     Route: 065
     Dates: start: 201804, end: 201804
  30. LINEZOLID [Suspect]
     Active Substance: LINEZOLID
     Indication: Peritonitis
     Route: 065
     Dates: start: 201805, end: 201805
  31. LINEZOLID [Suspect]
     Active Substance: LINEZOLID
     Indication: Enterobacter infection
  32. LINEZOLID [Suspect]
     Active Substance: LINEZOLID
     Indication: Staphylococcal infection
  33. DAPTOMYCIN [Suspect]
     Active Substance: DAPTOMYCIN
     Indication: Bacteraemia
     Route: 065
     Dates: start: 201803, end: 201803
  34. DAPTOMYCIN [Suspect]
     Active Substance: DAPTOMYCIN
     Indication: Pneumonia
     Route: 065
     Dates: start: 201804, end: 201804
  35. DAPTOMYCIN [Suspect]
     Active Substance: DAPTOMYCIN
     Indication: Peritonitis
  36. DAPTOMYCIN [Suspect]
     Active Substance: DAPTOMYCIN
     Indication: Enterobacter infection
  37. DAPTOMYCIN [Suspect]
     Active Substance: DAPTOMYCIN
     Indication: Staphylococcal infection
  38. CEFTAROLINE FOSAMIL [Suspect]
     Active Substance: CEFTAROLINE FOSAMIL
     Indication: Bacteraemia
     Route: 065
     Dates: start: 201803, end: 201803
  39. CEFTAROLINE FOSAMIL [Suspect]
     Active Substance: CEFTAROLINE FOSAMIL
     Indication: Pneumonia
  40. LEVOFLOXACIN [Suspect]
     Active Substance: LEVOFLOXACIN
     Indication: Bacteraemia
     Route: 065
     Dates: start: 201803, end: 201803

REACTIONS (1)
  - Treatment failure [Fatal]

NARRATIVE: CASE EVENT DATE: 20180101
